FAERS Safety Report 5028969-5 (Version None)
Quarter: 2006Q2

REPORT INFORMATION
  Report Type: 
  Country: None (occurrence: None)
  Receive Date: 20060619
  Receipt Date: 20060608
  Transmission Date: 20061013
  Serious: Yes (Death, Hospitalization)
  Sender: FDA-Public Use
  Company Number: US-BRISTOL-MYERS SQUIBB COMPANY-13404967

PATIENT
  Age: 71 Year
  Sex: Female

DRUGS (10)
  1. CARBOPLATIN [Suspect]
     Indication: OVARIAN CANCER
     Route: 042
     Dates: start: 20051006, end: 20051103
  2. TLK286 [Suspect]
     Indication: OVARIAN CANCER
     Route: 042
     Dates: start: 20051006, end: 20051103
  3. PANTOPRAZOLE [Concomitant]
     Indication: DYSPEPSIA
     Route: 048
     Dates: start: 20010901, end: 20051116
  4. CALCIUM CARBONATE [Concomitant]
     Indication: DYSPEPSIA
     Route: 048
     Dates: start: 20010901, end: 20051116
  5. ACETAMINOPHEN [Concomitant]
     Indication: MUSCULOSKELETAL CHEST PAIN
     Route: 048
     Dates: start: 20010101, end: 20051116
  6. NEULASTA [Concomitant]
     Indication: PROPHYLAXIS
     Route: 058
     Dates: start: 20051007, end: 20051116
  7. LOPERAMIDE HCL [Concomitant]
     Indication: DIARRHOEA
     Route: 048
     Dates: start: 20051007, end: 20051116
  8. ONDANSETRON HCL [Concomitant]
     Indication: NAUSEA
     Route: 060
     Dates: start: 20051103, end: 20051116
  9. DOCUSATE SODIUM [Concomitant]
     Indication: CONSTIPATION
     Route: 048
     Dates: start: 20051103, end: 20051116
  10. DEXAMETHASONE TAB [Concomitant]
     Indication: PROPHYLAXIS
     Route: 042
     Dates: start: 20051103, end: 20051103

REACTIONS (2)
  - DYSPNOEA [None]
  - MALIGNANT NEOPLASM PROGRESSION [None]
